FAERS Safety Report 6861117-5 (Version None)
Quarter: 2010Q3

REPORT INFORMATION
  Report Type: 
  Country: None (occurrence: None)
  Receive Date: 20100720
  Receipt Date: 20100709
  Transmission Date: 20110219
  Serious: No
  Sender: FDA-Public Use
  Company Number: US-JNJFOC-20100703673

PATIENT
  Sex: Female
  Weight: 68.04 kg

DRUGS (19)
  1. DURAGESIC-100 [Suspect]
     Indication: PAIN
     Route: 062
  2. DURAGESIC-100 [Suspect]
     Dosage: NDC NUMBER: 5045803605
     Route: 062
  3. DURAGESIC-100 [Suspect]
     Dosage: NDC NUMBER: 5045809205
     Route: 062
  4. COQ10 [Concomitant]
     Indication: BLOOD CHOLESTEROL INCREASED
     Route: 048
  5. LOPID [Concomitant]
     Indication: BLOOD CHOLESTEROL INCREASED
     Route: 048
  6. VIVELLE [Concomitant]
     Indication: HORMONE REPLACEMENT THERAPY
     Route: 062
  7. CYMBALTA [Concomitant]
     Indication: FIBROMYALGIA
     Route: 048
  8. LORATADINE [Concomitant]
     Indication: MULTIPLE ALLERGIES
     Route: 048
  9. SINGULAIR [Concomitant]
     Indication: ASTHMA
     Route: 048
  10. AMBIEN [Concomitant]
     Indication: INSOMNIA
     Route: 048
  11. VALTREX [Concomitant]
     Indication: HERPES VIRUS INFECTION
     Route: 048
  12. BENADRYL [Concomitant]
     Indication: INSOMNIA
     Route: 048
  13. TOPAMAX [Concomitant]
     Indication: MIGRAINE
     Route: 048
  14. METANX [Concomitant]
     Indication: VITAMIN SUPPLEMENTATION
     Route: 048
  15. TRIAMTERENE AND HYDROCHLOROTHIAZIDE [Concomitant]
     Route: 048
  16. LORAZEPAM [Concomitant]
     Indication: ANXIETY
     Route: 048
  17. ACIPHEX [Concomitant]
     Indication: GASTROOESOPHAGEAL REFLUX DISEASE
     Route: 048
  18. NEURONTIN [Concomitant]
     Indication: MUSCLE SPASMS
     Route: 048
  19. ROBAXIN [Concomitant]
     Indication: MUSCLE SPASMS
     Route: 048

REACTIONS (4)
  - CONSTIPATION [None]
  - PAIN [None]
  - PRODUCT QUALITY ISSUE [None]
  - WRONG TECHNIQUE IN DRUG USAGE PROCESS [None]
